FAERS Safety Report 12174253 (Version 1)
Quarter: 2016Q1

REPORT INFORMATION
  Report Type: Spontaneous
  Country: DE (occurrence: DE)
  Receive Date: 20160313
  Receipt Date: 20160313
  Transmission Date: 20160526
  Serious: Yes (Life-Threatening, Hospitalization, Other)
  Sender: FDA-Public Use
  Company Number: DE-B.I. PHARMACEUTICALS,INC./RIDGEFIELD-2016-BI-13850DE

PATIENT
  Age: 70 Year
  Sex: Male

DRUGS (1)
  1. PRADAXA [Suspect]
     Active Substance: DABIGATRAN ETEXILATE MESYLATE
     Indication: ATRIAL FIBRILLATION
     Dosage: 300 MG
     Route: 065
     Dates: end: 20160223

REACTIONS (4)
  - Hypertensive crisis [Unknown]
  - Thalamus haemorrhage [Not Recovered/Not Resolved]
  - Right hemisphere deficit syndrome [Unknown]
  - Headache [Unknown]

NARRATIVE: CASE EVENT DATE: 20160223
